FAERS Safety Report 7325329-9 (Version None)
Quarter: 2011Q1

REPORT INFORMATION
  Report Type: 
  Country: None (occurrence: None)
  Receive Date: 20110302
  Receipt Date: 20110207
  Transmission Date: 20110831
  Serious: Yes (Hospitalization, Other)
  Sender: FDA-Public Use
  Company Number: US-BAYER-201030529NA

PATIENT
  Sex: Female
  Weight: 65.76 kg

DRUGS (13)
  1. YAZ [Suspect]
     Indication: ORAL CONTRACEPTION
  2. YAZ [Suspect]
     Indication: PREMENSTRUAL SYNDROME
  3. YAZ [Suspect]
     Indication: ENDOMETRIOSIS
  4. ADVAIR DISKUS 100/50 [Concomitant]
     Indication: ASTHMA
     Dosage: UNK
     Dates: start: 19950101
  5. YAZ [Suspect]
     Indication: MENSTRUAL CYCLE MANAGEMENT
     Dosage: 1 TAB/DAY
     Route: 048
     Dates: start: 20070401, end: 20070815
  6. YAZ [Suspect]
     Indication: UTERINE LEIOMYOMA
  7. TYLENOL 1 [Concomitant]
     Dosage: 325 MG EVERY 4 HRS AS NEEDED
  8. FLOVENT [Concomitant]
     Indication: ASTHMA
     Dosage: UNK
     Dates: start: 19950101
  9. PRILOSEC [Concomitant]
     Dosage: DAILY DOSE 20 MG
     Route: 048
  10. AMBIEN CR [Concomitant]
     Dosage: 12.5 MG, UNK
     Route: 048
  11. ZOFRAN [Concomitant]
     Indication: NAUSEA
     Dosage: 8 MG THREE TIMES DAILY AS NEEDED
     Route: 048
  12. ALBUTEROL [Concomitant]
     Indication: ASTHMA
     Dosage: 2 INHALATIONS EVERY 4-6 HOURS AS NEEDED
     Route: 055
     Dates: start: 19950101
  13. IBUPROFEN [Concomitant]

REACTIONS (4)
  - PANIC ATTACK [None]
  - ANXIETY [None]
  - CHEST DISCOMFORT [None]
  - PULMONARY EMBOLISM [None]
